FAERS Safety Report 4842512-2 (Version None)
Quarter: 2005Q4

REPORT INFORMATION
  Report Type: 
  Country: None (occurrence: None)
  Receive Date: 20051129
  Receipt Date: 20051110
  Transmission Date: 20060501
  Serious: Yes (Other)
  Sender: FDA-Public Use
  Company Number: US_0410107428

PATIENT
  Age: 72 Year
  Sex: Female
  Weight: 78.2 kg

DRUGS (7)
  1. TERIPARATIDE (TERIPARATIDE) PEN, DISPOSABLE [Suspect]
     Indication: OSTEOPOROSIS
     Dosage: 20 UG, DAILY (1/D), SUBCUTANEOUS
     Route: 058
     Dates: start: 20040525, end: 20041026
  2. VIOXX [Concomitant]
  3. CALCIUM GLUCONATE [Concomitant]
  4. MULTI-VITAMIN [Concomitant]
  5. THYROID TAB [Concomitant]
  6. DETROL LA [Concomitant]
  7. FORTEO PEN (FORTEO PEN) [Concomitant]

REACTIONS (2)
  - HYPERPARATHYROIDISM [None]
  - PARATHYROID TUMOUR BENIGN [None]
